FAERS Safety Report 9637472 (Version 1)
Quarter: 2013Q4

REPORT INFORMATION
  Report Type: Spontaneous
  Country: US (occurrence: None)
  Receive Date: 20131018
  Receipt Date: 20131018
  Transmission Date: 20140711
  Serious: Yes (Other)
  Sender: FDA-Public Use
  Company Number: 2013PL000171

PATIENT
  Age: 65 Year
  Sex: Male

DRUGS (6)
  1. PROLEUKIN [Suspect]
     Indication: METASTATIC RENAL CELL CARCINOMA
  2. ACETAMINOPHEN [Concomitant]
  3. DIPHENHYDRAMINE [Concomitant]
  4. HYDROMORPHONE [Concomitant]
  5. ONDANSETRON [Concomitant]
  6. MEPERIDINE /00016301/ [Concomitant]

REACTIONS (4)
  - Acute generalised exanthematous pustulosis [None]
  - Neutrophilia [None]
  - Corneal abscess [None]
  - Eosinophilia [None]
